FAERS Safety Report 8695247 (Version 3)
Quarter: 2012Q4

REPORT INFORMATION
  Report Type: 
  Country: US (occurrence: US)
  Receive Date: 20120731
  Receipt Date: 20120907
  Transmission Date: 20130627
  Serious: No
  Sender: FDA-Public Use
  Company Number: US-ASTRAZENECA-2012SE49749

PATIENT
  Age: 49 Year
  Sex: Female
  Weight: 68 kg

DRUGS (17)
  1. SEROQUEL [Suspect]
     Indication: HALLUCINATIONS, MIXED
     Route: 048
     Dates: start: 2002
  2. SEROQUEL [Suspect]
     Indication: POST-TRAUMATIC STRESS DISORDER
     Route: 048
     Dates: start: 2002
  3. SEROQUEL [Suspect]
     Indication: SCHIZOPHRENIA
     Route: 048
     Dates: start: 2002
  4. SEROQUEL [Suspect]
     Indication: HALLUCINATIONS, MIXED
     Route: 048
     Dates: start: 2004
  5. SEROQUEL [Suspect]
     Indication: POST-TRAUMATIC STRESS DISORDER
     Route: 048
     Dates: start: 2004
  6. SEROQUEL [Suspect]
     Indication: SCHIZOPHRENIA
     Route: 048
     Dates: start: 2004
  7. SEROQUEL [Suspect]
     Indication: HALLUCINATIONS, MIXED
     Route: 048
     Dates: start: 2010
  8. SEROQUEL [Suspect]
     Indication: POST-TRAUMATIC STRESS DISORDER
     Route: 048
     Dates: start: 2010
  9. SEROQUEL [Suspect]
     Indication: SCHIZOPHRENIA
     Route: 048
     Dates: start: 2010
  10. SEROQUEL [Suspect]
     Indication: HALLUCINATIONS, MIXED
     Dosage: GENERIC
     Route: 048
     Dates: start: 201205
  11. SEROQUEL [Suspect]
     Indication: POST-TRAUMATIC STRESS DISORDER
     Dosage: GENERIC
     Route: 048
     Dates: start: 201205
  12. SEROQUEL [Suspect]
     Indication: SCHIZOPHRENIA
     Dosage: GENERIC
     Route: 048
     Dates: start: 201205
  13. NAPROXEN [Concomitant]
     Indication: PAIN
  14. NAPROXEN [Concomitant]
     Indication: PAIN
  15. ENBREL [Concomitant]
     Indication: ARTHRITIS
     Dates: start: 201103
  16. CARISOPRODOL [Concomitant]
     Indication: MUSCLE RELAXANT THERAPY
  17. RASTASIS [Concomitant]
     Indication: EYE DISORDER

REACTIONS (7)
  - Hallucinations, mixed [Not Recovered/Not Resolved]
  - Abnormal dreams [Unknown]
  - Tremor [Unknown]
  - Drug dose omission [Unknown]
  - Off label use [Unknown]
  - Off label use [Unknown]
  - Drug ineffective for unapproved indication [Unknown]
